FAERS Safety Report 6023739-3 (Version None)
Quarter: 2008Q4

REPORT INFORMATION
  Report Type: 
  Country: None (occurrence: None)
  Receive Date: 20081230
  Receipt Date: 20081219
  Transmission Date: 20090506
  Serious: Yes (Death)
  Sender: FDA-Public Use
  Company Number: US-BAXTER-2008BH014052

PATIENT
  Age: 81 Year
  Sex: Male

DRUGS (2)
  1. DIANEAL [Suspect]
     Indication: PERITONEAL DIALYSIS
     Route: 033
     Dates: start: 20071008, end: 20081219
  2. DIANEAL [Suspect]
     Route: 033
     Dates: start: 20061219, end: 20071008

REACTIONS (2)
  - CARDIAC ARREST [None]
  - FAILURE TO THRIVE [None]
